FAERS Safety Report 21141348 (Version 7)
Quarter: 2023Q1

REPORT INFORMATION
  Report Type: Spontaneous
  Country: JP (occurrence: JP)
  Receive Date: 20220728
  Receipt Date: 20230103
  Transmission Date: 20230418
  Serious: Yes (Hospitalization)
  Sender: FDA-Public Use
  Company Number: JP-JNJFOC-20220756403

PATIENT
  Age: 61 Year
  Sex: Male
  Weight: 50.5 kg

DRUGS (12)
  1. REMINYL [Suspect]
     Active Substance: GALANTAMINE
     Indication: Dementia Alzheimer^s type
     Route: 048
     Dates: start: 20210309, end: 20210405
  2. REMINYL [Suspect]
     Active Substance: GALANTAMINE
     Indication: Dementia Alzheimer^s type
     Route: 048
     Dates: start: 20210406, end: 20210419
  3. REMINYL [Suspect]
     Active Substance: GALANTAMINE
     Indication: Dementia Alzheimer^s type
     Route: 048
     Dates: start: 20210420, end: 20210607
  4. REMINYL [Suspect]
     Active Substance: GALANTAMINE
     Indication: Dementia Alzheimer^s type
     Route: 048
     Dates: start: 20210608, end: 2021
  5. REMINYL [Suspect]
     Active Substance: GALANTAMINE
     Indication: Dementia Alzheimer^s type
     Route: 048
     Dates: start: 20210107, end: 20210215
  6. REMINYL [Suspect]
     Active Substance: GALANTAMINE
     Indication: Dementia Alzheimer^s type
     Route: 048
     Dates: start: 20210216, end: 20210308
  7. REMINYL [Suspect]
     Active Substance: GALANTAMINE
     Indication: Dementia Alzheimer^s type
     Dosage: 8MG
     Route: 048
     Dates: start: 20210706
  8. NEXIUM [Concomitant]
     Active Substance: ESOMEPRAZOLE MAGNESIUM
     Indication: Gastritis prophylaxis
     Dosage: AFTER DINNER
     Route: 048
     Dates: start: 20210426
  9. METGLUCO [Concomitant]
     Active Substance: METFORMIN HYDROCHLORIDE
     Indication: Type 2 diabetes mellitus
     Dosage: BEFORE LUNCH AND DINNER
     Route: 048
     Dates: start: 20220314
  10. GLUCOBAY [Concomitant]
     Active Substance: ACARBOSE
     Indication: Type 2 diabetes mellitus
     Dosage: BEFORE LUNCH AND DINNER
     Route: 048
     Dates: start: 20220314
  11. GLICLAZIDE [Concomitant]
     Active Substance: GLICLAZIDE
     Indication: Type 2 diabetes mellitus
     Dosage: RIGHT BEFORE LUNCH
     Route: 048
     Dates: start: 20210629
  12. TENELIGLIPTIN [Concomitant]
     Active Substance: TENELIGLIPTIN
     Indication: Type 2 diabetes mellitus
     Dosage: BEFORE LUNCH
     Route: 048
     Dates: start: 20220627

REACTIONS (5)
  - Nephrolithiasis [Recovered/Resolved]
  - Adrenal mass [Not Recovered/Not Resolved]
  - Decreased appetite [Recovered/Resolved]
  - Nausea [Recovered/Resolved]
  - Nausea [Recovered/Resolved]

NARRATIVE: CASE EVENT DATE: 20210309
